APPROVED DRUG PRODUCT: CARIPRAZINE HYDROCHLORIDE
Active Ingredient: CARIPRAZINE HYDROCHLORIDE
Strength: EQ 6MG BASE
Dosage Form/Route: CAPSULE;ORAL
Application: A213982 | Product #003
Applicant: AUROBINDO PHARMA LTD
Approved: Dec 16, 2025 | RLD: No | RS: No | Type: DISCN